FAERS Safety Report 5756373-0 (Version None)
Quarter: 2008Q2

REPORT INFORMATION
  Report Type: 
  Country: None (occurrence: None)
  Receive Date: 20080529
  Receipt Date: 20080518
  Transmission Date: 20081010
  Serious: Yes (Hospitalization)
  Sender: FDA-Public Use
  Company Number: MIN-00348

PATIENT
  Age: 18 Year
  Sex: Female

DRUGS (2)
  1. MINOCYCLINE HCL [Suspect]
     Indication: ACNE
  2. SERTRALINE [Concomitant]

REACTIONS (24)
  - ASTHENIA [None]
  - BLOOD CHLORIDE INCREASED [None]
  - BODY TEMPERATURE DECREASED [None]
  - CHEST DISCOMFORT [None]
  - DEAFNESS [None]
  - DYSPNOEA EXERTIONAL [None]
  - FACIAL PARESIS [None]
  - FATIGUE [None]
  - GAIT DISTURBANCE [None]
  - GASTRITIS [None]
  - INFECTIOUS MONONUCLEOSIS [None]
  - LACTIC ACIDOSIS [None]
  - METABOLIC ACIDOSIS [None]
  - MIGRAINE [None]
  - MITOCHONDRIAL DNA MUTATION [None]
  - MITOCHONDRIAL MYOPATHY [None]
  - MUSCLE ATROPHY [None]
  - MUSCLE SPASMS [None]
  - MYALGIA [None]
  - PCO2 DECREASED [None]
  - PINEAL NEOPLASM [None]
  - PRESYNCOPE [None]
  - RESPIRATORY RATE INCREASED [None]
  - WEIGHT DECREASED [None]
